FAERS Safety Report 6058121-6 (Version None)
Quarter: 2009Q1

REPORT INFORMATION
  Report Type: 
  Country: None (occurrence: None)
  Receive Date: 20090130
  Receipt Date: 20090116
  Transmission Date: 20090719
  Serious: Yes (Death)
  Sender: FDA-Public Use
  Company Number: US-RANBAXY-2009RR-21277

PATIENT
  Age: 69 Year
  Sex: Male

DRUGS (13)
  1. AMLODIPINE [Suspect]
     Indication: COMPLETED SUICIDE
     Route: 048
  2. METOPROLOL [Suspect]
     Indication: COMPLETED SUICIDE
     Route: 048
  3. CLONIDINE [Suspect]
     Indication: COMPLETED SUICIDE
     Route: 048
  4. SALICYLATE [Suspect]
     Indication: COMPLETED SUICIDE
     Route: 048
  5. ALBUTEROL [Suspect]
     Indication: COMPLETED SUICIDE
     Route: 048
  6. RANITIDINE [Suspect]
     Indication: COMPLETED SUICIDE
     Route: 048
  7. TIAGABINE HCL [Suspect]
     Indication: COMPLETED SUICIDE
     Route: 048
  8. CLOPIDOGREL [Suspect]
     Indication: COMPLETED SUICIDE
     Route: 048
  9. LISINOPRIL [Suspect]
     Indication: COMPLETED SUICIDE
     Route: 048
  10. EZETIMIBE [Suspect]
     Indication: COMPLETED SUICIDE
     Route: 048
  11. LORAZEPAM [Suspect]
     Indication: COMPLETED SUICIDE
     Route: 048
  12. ATORVASTATIN [Suspect]
     Indication: COMPLETED SUICIDE
     Route: 048
  13. PHENYTOIN [Suspect]
     Indication: COMPLETED SUICIDE
     Route: 048

REACTIONS (1)
  - COMPLETED SUICIDE [None]
